FAERS Safety Report 11837799 (Version 2)
Quarter: 2015Q4

REPORT INFORMATION
  Report Type: Spontaneous
  Country: US (occurrence: US)
  Receive Date: 20151215
  Receipt Date: 20151215
  Transmission Date: 20160305
  Serious: Yes (Other)
  Sender: FDA-Public Use
  Company Number: US-PFIZER INC-2015441736

PATIENT
  Sex: Female
  Weight: 90.72 kg

DRUGS (3)
  1. EFFEXOR XR [Suspect]
     Active Substance: VENLAFAXINE HYDROCHLORIDE
     Indication: STRESS
  2. EFFEXOR XR [Suspect]
     Active Substance: VENLAFAXINE HYDROCHLORIDE
     Indication: MIGRAINE
  3. EFFEXOR XR [Suspect]
     Active Substance: VENLAFAXINE HYDROCHLORIDE
     Indication: PANIC ATTACK
     Dosage: 225 MG, 1X/DAY
     Dates: end: 201512

REACTIONS (8)
  - Drug dependence [Unknown]
  - Headache [Recovering/Resolving]
  - Migraine [Not Recovered/Not Resolved]
  - Crying [Unknown]
  - Musculoskeletal pain [Unknown]
  - Panic attack [Unknown]
  - Neck pain [Unknown]
  - Head discomfort [Unknown]

NARRATIVE: CASE EVENT DATE: 201512
